FAERS Safety Report 24915582 (Version 1)
Quarter: 2025Q1

REPORT INFORMATION
  Report Type: Report from Study
  Country: CA (occurrence: CA)
  Receive Date: 20250203
  Receipt Date: 20250203
  Transmission Date: 20250408
  Serious: Yes (Hospitalization, Other)
  Sender: REGENERON
  Company Number: CA-BAYER-2024A156296

PATIENT
  Sex: Female

DRUGS (1)
  1. EYLEA [Suspect]
     Active Substance: AFLIBERCEPT
     Indication: Age-related macular degeneration
     Dates: start: 20240102

REACTIONS (2)
  - Hospitalisation [Unknown]
  - Dementia [Unknown]

NARRATIVE: CASE EVENT DATE: 20240318
